FAERS Safety Report 23934270 (Version 1)
Quarter: 2024Q2

REPORT INFORMATION
  Report Type: Spontaneous
  Country: DE (occurrence: DE)
  Receive Date: 20240603
  Receipt Date: 20240603
  Transmission Date: 20240716
  Serious: Yes (Hospitalization)
  Sender: FDA-Public Use
  Company Number: None

PATIENT
  Age: 27 Year
  Sex: Female
  Weight: 49 kg

DRUGS (1)
  1. BRODALUMAB [Suspect]
     Active Substance: BRODALUMAB
     Indication: Psoriasis
     Dosage: 1X PRE-FILLED SYRINGE BI-WEEKLY
     Route: 058
     Dates: start: 202102

REACTIONS (9)
  - Dizziness [Recovered/Resolved]
  - Pain [Recovered/Resolved]
  - Pleurisy [Recovered/Resolved]
  - Blood pressure decreased [Recovered/Resolved]
  - Cough [Recovered/Resolved]
  - Peripheral vascular disorder [Recovered/Resolved]
  - Pneumonitis [Recovered/Resolved]
  - Bronchitis [Recovered/Resolved]
  - Musculoskeletal chest pain [Unknown]

NARRATIVE: CASE EVENT DATE: 20240101
